FAERS Safety Report 4472174-8 (Version None)
Quarter: 2004Q4

REPORT INFORMATION
  Report Type: 
  Country: None (occurrence: None)
  Receive Date: 20041012
  Receipt Date: 20041004
  Transmission Date: 20050328
  Serious: Yes (Hospitalization)
  Sender: FDA-Public Use
  Company Number: BR-MERCK-0410BRA00194

PATIENT
  Age: 48 Year
  Sex: Female

DRUGS (3)
  1. ENOXAPARIN SODIUM [Concomitant]
     Indication: THROMBOSIS
     Route: 051
     Dates: start: 20040101
  2. VIOXX [Suspect]
     Indication: RHEUMATOID ARTHRITIS
     Route: 048
     Dates: start: 20040101
  3. VIOXX [Suspect]
     Route: 048
     Dates: start: 20040830

REACTIONS (2)
  - TENDONITIS [None]
  - THROMBOSIS [None]
